FAERS Safety Report 5353998-1 (Version None)
Quarter: 2007Q2

REPORT INFORMATION
  Report Type: 
  Country: None (occurrence: None)
  Receive Date: 20070612
  Receipt Date: 20070531
  Transmission Date: 20071010
  Serious: Yes (Other)
  Sender: FDA-Public Use
  Company Number: US-ASTRAZENECA-2006UW08483

PATIENT
  Sex: Male
  Weight: 52.3 kg

DRUGS (9)
  1. SEROQUEL [Suspect]
     Indication: SLEEP DISORDER
     Dosage: 25 MG TO 50 MG
     Route: 048
     Dates: start: 20050330, end: 20050922
  2. SEROQUEL [Suspect]
     Indication: INSOMNIA
     Dosage: 25 MG TO 50 MG
     Route: 048
     Dates: start: 20050330, end: 20050922
  3. SEROQUEL [Suspect]
     Route: 048
     Dates: start: 20050330, end: 20050922
  4. SEROQUEL [Suspect]
     Route: 048
     Dates: start: 20050330, end: 20050922
  5. SEROQUEL [Suspect]
     Route: 048
     Dates: start: 20050330, end: 20050922
  6. SEROQUEL [Suspect]
     Route: 048
     Dates: start: 20050330, end: 20050922
  7. MIRTAZAPINE [Concomitant]
  8. MIRTAZAPINE [Concomitant]
  9. ZOLOFT [Concomitant]

REACTIONS (2)
  - DIABETES MELLITUS [None]
  - PANCREATITIS [None]
